FAERS Safety Report 4391228-8 (Version None)
Quarter: 2004Q2

REPORT INFORMATION
  Report Type: 
  Country: None (occurrence: None)
  Receive Date: 20040621
  Receipt Date: 20031024
  Transmission Date: 20050107
  Serious: Yes (Other)
  Sender: FDA-Public Use
  Company Number: USA-2002-0002166

PATIENT
  Age: 48 Year
  Sex: Male
  Weight: 82.1 kg

DRUGS (8)
  1. OXYCONTIN [Suspect]
     Indication: PAIN
     Dosage: 10 MG, BID, ORAL
     Route: 048
     Dates: start: 19990226, end: 19990101
  2. NEURONTIN [Concomitant]
  3. ATIVAN [Concomitant]
  4. MONOPRIL [Concomitant]
  5. PROCARDIA XL [Concomitant]
  6. ZANTAC [Concomitant]
  7. ASACOL [Concomitant]
  8. ELAVIL [Concomitant]

REACTIONS (7)
  - DEPRESSION [None]
  - DRUG ABUSER [None]
  - DRUG DEPENDENCE [None]
  - DRUG INEFFECTIVE [None]
  - DRUG WITHDRAWAL SYNDROME [None]
  - EMOTIONAL DISTRESS [None]
  - PAIN [None]
